FAERS Safety Report 22079687 (Version 1)
Quarter: 2023Q1

REPORT INFORMATION
  Report Type: Spontaneous
  Country: US (occurrence: US)
  Receive Date: 20230309
  Receipt Date: 20230309
  Transmission Date: 20230417
  Serious: Yes (Other)
  Sender: FDA-Public Use
  Company Number: US-009507513-2303USA002282

PATIENT
  Age: 22 Year
  Sex: Female

DRUGS (6)
  1. NOXAFIL [Interacting]
     Active Substance: POSACONAZOLE
     Indication: Antifungal prophylaxis
     Route: 048
  2. PONATINIB [Interacting]
     Active Substance: PONATINIB
     Indication: Philadelphia positive acute lymphocytic leukaemia
     Dosage: 30 MILLIGRAM (EQUIVALENT DOSE: }45MG)
  3. CYCLOPHOSPHAMIDE [Concomitant]
     Active Substance: CYCLOPHOSPHAMIDE
  4. VINCRISTINE [Concomitant]
     Active Substance: VINCRISTINE
  5. DOXORUBICIN [Concomitant]
     Active Substance: DOXORUBICIN
  6. DEXAMETHASONE [Concomitant]
     Active Substance: DEXAMETHASONE

REACTIONS (2)
  - Pulmonary embolism [Unknown]
  - Potentiating drug interaction [Unknown]
